FAERS Safety Report 5142002-6 (Version None)
Quarter: 2006Q4

REPORT INFORMATION
  Report Type: 
  Country: None (occurrence: None)
  Receive Date: 20061102
  Receipt Date: 20061024
  Transmission Date: 20070319
  Serious: Yes (Other)
  Sender: FDA-Public Use
  Company Number: GB-JNJFOC-20061004608

PATIENT
  Age: 56 Year
  Sex: Male

DRUGS (3)
  1. INFLIXIMAB [Suspect]
     Dosage: 3 TO 5 MG/KG, ONCE EVERY 8-10 WEEKS
  2. INFLIXIMAB [Suspect]
     Dosage: AT 0,2, AND 6 WEEKS
  3. INFLIXIMAB [Suspect]
     Indication: PSORIASIS
     Dosage: AT 0,2, AND 6 WEEKS

REACTIONS (5)
  - ANAPLASTIC LARGE CELL LYMPHOMA T- AND NULL-CELL TYPES [None]
  - EPSTEIN-BARR VIRUS ANTIBODY POSITIVE [None]
  - LYMPHOMATOID PAPULOSIS [None]
  - MYCOSIS FUNGOIDES [None]
  - SKIN NODULE [None]
